FAERS Safety Report 16498024 (Version 1)
Quarter: 2019Q2

REPORT INFORMATION
  Report Type: Spontaneous
  Country: BR (occurrence: BR)
  Receive Date: 20190628
  Receipt Date: 20190628
  Transmission Date: 20190711
  Serious: Yes (Disabling, Other)
  Sender: FDA-Public Use
  Company Number: BR-MYLANLABS-2019M1061133

PATIENT
  Sex: Female

DRUGS (1)
  1. ESTRADIOL MYLAN [Suspect]
     Active Substance: ESTRADIOL
     Indication: MENOPAUSE
     Dosage: 1 PUMP DAILY AT NIGHT , QD (INNERS THIGHS, CLOSE TO THE GROIN)
     Route: 062
     Dates: start: 201906

REACTIONS (6)
  - Product dose omission [Unknown]
  - Nail discolouration [Unknown]
  - Hot flush [Unknown]
  - Skin discolouration [Unknown]
  - Drug ineffective [Unknown]
  - Foot fracture [Unknown]

NARRATIVE: CASE EVENT DATE: 201906
